FAERS Safety Report 7888959-1 (Version None)
Quarter: 2011Q4

REPORT INFORMATION
  Report Type: 
  Country: None (occurrence: None)
  Receive Date: 20111103
  Receipt Date: 20111025
  Transmission Date: 20120403
  Serious: Yes (Hospitalization, Other)
  Sender: FDA-Public Use
  Company Number: PHHY2011DE94708

PATIENT
  Sex: Female

DRUGS (1)
  1. TASIGNA [Suspect]
     Indication: CHRONIC MYELOID LEUKAEMIA
     Dosage: UNK UKN, UNK
     Dates: start: 20110504

REACTIONS (6)
  - DYSPNOEA [None]
  - PLEURAL EFFUSION [None]
  - CARDIAC DISORDER [None]
  - RENAL FUNCTION TEST ABNORMAL [None]
  - PNEUMONIA [None]
  - HEPATIC FUNCTION ABNORMAL [None]
